FAERS Safety Report 5004706-5 (Version None)
Quarter: 2006Q2

REPORT INFORMATION
  Report Type: 
  Country: None (occurrence: None)
  Receive Date: 20060517
  Receipt Date: 20060508
  Transmission Date: 20061013
  Serious: Yes (Disabling)
  Sender: FDA-Public Use
  Company Number: US-ABBOTT-06P-163-0332609-00

PATIENT
  Sex: Female
  Weight: 118 kg

DRUGS (4)
  1. MERIDIA [Suspect]
     Indication: WEIGHT CONTROL
     Route: 048
     Dates: start: 20040801, end: 20050301
  2. VENLAFAXINE HCL [Suspect]
     Indication: MOOD SWINGS
     Route: 048
     Dates: start: 20050101, end: 20050601
  3. VENLAFAXINE HCL [Suspect]
     Indication: HORMONE LEVEL ABNORMAL
  4. LEVOTHYROXINE SODIUM [Concomitant]
     Indication: HYPOTHYROIDISM
     Route: 048

REACTIONS (4)
  - BLOOD PRESSURE INCREASED [None]
  - DYSPNOEA [None]
  - JOINT SWELLING [None]
  - RASH [None]
